FAERS Safety Report 16740259 (Version 3)
Quarter: 2019Q4

REPORT INFORMATION
  Report Type: Spontaneous
  Country: JP (occurrence: JP)
  Receive Date: 20190826
  Receipt Date: 20191024
  Transmission Date: 20200122
  Serious: Yes (Other)
  Sender: FDA-Public Use
  Company Number: JP-BRISTOL-MYERS SQUIBB COMPANY-BMS-2019-079211

PATIENT
  Age: 62 Year
  Sex: Male

DRUGS (1)
  1. OPDIVO [Suspect]
     Active Substance: NIVOLUMAB
     Indication: HEAD AND NECK CANCER
     Dosage: 240 MG
     Route: 041
     Dates: end: 2019

REACTIONS (3)
  - Type 2 diabetes mellitus [Unknown]
  - Malignant neoplasm progression [Unknown]
  - Condition aggravated [Unknown]

NARRATIVE: CASE EVENT DATE: 201908
